FAERS Safety Report 8050851-X (Version None)
Quarter: 2012Q1

REPORT INFORMATION
  Report Type: 
  Country: None (occurrence: None)
  Receive Date: 20120117
  Receipt Date: 20120105
  Transmission Date: 20120608
  Serious: Yes (Other)
  Sender: FDA-Public Use
  Company Number: PHHY2011CH77177

PATIENT
  Sex: Male

DRUGS (4)
  1. STALEVO 100 [Suspect]
     Dosage: UNK UKN, UNK
  2. TOLTERODINE TARTRATE [Concomitant]
     Dosage: UNK UKN, UNK
  3. CLOZAPINE [Concomitant]
     Dosage: 6.25 MG, UNK
  4. EXELON [Concomitant]
     Dosage: 10 MG, UNK

REACTIONS (2)
  - DEVICE OCCLUSION [None]
  - URINARY SEDIMENT PRESENT [None]
